FAERS Safety Report 15129594 (Version 1)
Quarter: 2018Q3

REPORT INFORMATION
  Report Type: Spontaneous
  Country: US (occurrence: US)
  Receive Date: 20180711
  Receipt Date: 20180711
  Transmission Date: 20181010
  Serious: Yes (Other)
  Sender: FDA-Public Use
  Company Number: US-SA-2018SA147997

PATIENT
  Age: 77 Year
  Sex: Male

DRUGS (1)
  1. NASACORT ALLERGY 24HR [Suspect]
     Active Substance: TRIAMCINOLONE ACETONIDE
     Dosage: 55 MG, QD

REACTIONS (4)
  - Nasal polyps [Unknown]
  - Muscle rupture [Unknown]
  - Sinus disorder [Unknown]
  - Hypersensitivity [Unknown]
